FAERS Safety Report 5569173-1 (Version None)
Quarter: 2007Q4

REPORT INFORMATION
  Report Type: 
  Country: None (occurrence: None)
  Receive Date: 20071220
  Receipt Date: 20070815
  Transmission Date: 20080405
  Serious: No
  Sender: FDA-Public Use
  Company Number: A0670671A

PATIENT
  Age: 84 Year
  Sex: Male

DRUGS (7)
  1. AVODART [Suspect]
     Indication: BENIGN PROSTATIC HYPERPLASIA
     Dosage: .5MG PER DAY
     Route: 048
     Dates: start: 20070801
  2. FLOMAX [Concomitant]
  3. ISOSORBIDE DINITRATE [Concomitant]
  4. ATENOLOL [Concomitant]
  5. LOVASTATIN [Concomitant]
  6. HYDROCHLOROTHIAZIDE [Concomitant]
  7. WARFARIN SODIUM [Concomitant]

REACTIONS (1)
  - DYSPHAGIA [None]
